FAERS Safety Report 23151880 (Version 2)
Quarter: 2023Q4

REPORT INFORMATION
  Report Type: Spontaneous
  Country: JP (occurrence: JP)
  Receive Date: 20231107
  Receipt Date: 20231116
  Transmission Date: 20240109
  Serious: Yes (Other)
  Sender: FDA-Public Use
  Company Number: JP-MSD-2310JPN004469J

PATIENT
  Age: 61 Year
  Sex: Female

DRUGS (2)
  1. KEYTRUDA [Suspect]
     Active Substance: PEMBROLIZUMAB
     Indication: Uterine cancer
     Dosage: UNK
     Route: 065
  2. LENVATINIB MESYLATE [Suspect]
     Active Substance: LENVATINIB MESYLATE
     Indication: Uterine cancer
     Dosage: UNK
     Route: 065

REACTIONS (2)
  - Cardiac failure acute [Recovering/Resolving]
  - Cardiomyopathy [Recovering/Resolving]
